FAERS Safety Report 5916151-6 (Version None)
Quarter: 2008Q4

REPORT INFORMATION
  Report Type: 
  Country: None (occurrence: None)
  Receive Date: 20081009
  Receipt Date: 20080929
  Transmission Date: 20090506
  Serious: Yes (Hospitalization)
  Sender: FDA-Public Use
  Company Number: 2008BI020002

PATIENT
  Age: 57 Year
  Sex: Male
  Weight: 75.7507 kg

DRUGS (3)
  1. TYSABRI [Suspect]
     Indication: MULTIPLE SCLEROSIS
     Dosage: 300 MG;QM;IV
     Route: 042
     Dates: start: 20070701, end: 20080805
  2. . [Concomitant]
  3. . [Concomitant]

REACTIONS (3)
  - COMPLEX PARTIAL SEIZURES [None]
  - EMBOLIC STROKE [None]
  - LACUNAR INFARCTION [None]
